FAERS Safety Report 6653924-9 (Version None)
Quarter: 2010Q1

REPORT INFORMATION
  Report Type: 
  Country: None (occurrence: None)
  Receive Date: 20100324
  Receipt Date: 20100315
  Transmission Date: 20100710
  Serious: Yes (Death)
  Sender: FDA-Public Use
  Company Number: WAES 1003USA02417

PATIENT

DRUGS (3)
  1. DECADRON [Suspect]
     Dosage: 40 MG, PO
     Route: 048
  2. DOXORUBICIN HCL [Suspect]
     Dosage: 60 MG/M[2]
  3. CYCLOPHOSPHAMIDE [Suspect]

REACTIONS (1)
  - POISONING [None]
